FAERS Safety Report 17071755 (Version 1)
Quarter: 2019Q4

REPORT INFORMATION
  Report Type: Spontaneous
  Country: US (occurrence: US)
  Receive Date: 20191025
  Receipt Date: 20191025
  Transmission Date: 20200122
  Serious: Yes (Death, Hospitalization)
  Sender: FDA-Public Use
  Company Number: None

PATIENT
  Age: 5 Year
  Sex: Female
  Weight: 19.4 kg

DRUGS (4)
  1. ONCASPAR [Suspect]
     Active Substance: PEGASPARGASE
     Dates: end: 20191015
  2. VINCRISTINE SULFATE. [Suspect]
     Active Substance: VINCRISTINE SULFATE
     Dates: end: 20191018
  3. DEXAMETHASONE. [Suspect]
     Active Substance: DEXAMETHASONE
     Dates: end: 20191022
  4. CYTARABINE. [Suspect]
     Active Substance: CYTARABINE
     Dates: end: 20191011

REACTIONS (8)
  - Bradycardia [None]
  - Pyrexia [None]
  - Chills [None]
  - Tremor [None]
  - Apnoea [None]
  - Hypotension [None]
  - Seizure [None]
  - Escherichia test positive [None]

NARRATIVE: CASE EVENT DATE: 20191022
